FAERS Safety Report 7686089-5 (Version None)
Quarter: 2011Q3

REPORT INFORMATION
  Report Type: 
  Country: None (occurrence: None)
  Receive Date: 20110816
  Receipt Date: 20110805
  Transmission Date: 20111222
  Serious: No
  Sender: FDA-Public Use
  Company Number: US-PFIZER INC-2011179993

PATIENT
  Age: 95 Year
  Sex: Female

DRUGS (1)
  1. FLAGYL [Suspect]
     Dosage: UNK
     Route: 048

REACTIONS (4)
  - DYSGEUSIA [None]
  - DECREASED APPETITE [None]
  - WEIGHT DECREASED [None]
  - MALAISE [None]
